FAERS Safety Report 11803386 (Version 2)
Quarter: 2016Q1

REPORT INFORMATION
  Report Type: Spontaneous
  Country: CA (occurrence: CA)
  Receive Date: 20151204
  Receipt Date: 20160125
  Transmission Date: 20160525
  Serious: Yes (Hospitalization, Other)
  Sender: FDA-Public Use
  Company Number: CA-PFIZER INC-2015304920

PATIENT
  Age: 68 Year
  Sex: Male

DRUGS (4)
  1. CYMBALTA [Concomitant]
     Active Substance: DULOXETINE HYDROCHLORIDE
     Dosage: UNK
  2. XELJANZ [Suspect]
     Active Substance: TOFACITINIB CITRATE
     Indication: RHEUMATOID ARTHRITIS
     Dosage: 5 MG, 2X/DAY
     Route: 048
     Dates: start: 20150331, end: 201511
  3. METHOTREXATE [Concomitant]
     Active Substance: METHOTREXATE
     Indication: RHEUMATOID ARTHRITIS
     Dosage: UNK
  4. LYRICA [Concomitant]
     Active Substance: PREGABALIN
     Dosage: UNK

REACTIONS (5)
  - Dyspnoea [Not Recovered/Not Resolved]
  - Infection [Unknown]
  - Fibromyalgia [Unknown]
  - Cardiac failure congestive [Recovering/Resolving]
  - Therapeutic response unexpected [Unknown]

NARRATIVE: CASE EVENT DATE: 201511
